FAERS Safety Report 7209660-3 (Version None)
Quarter: 2011Q1

REPORT INFORMATION
  Report Type: 
  Country: None (occurrence: None)
  Receive Date: 20110103
  Receipt Date: 20110103
  Transmission Date: 20110831
  Serious: No
  Sender: FDA-Public Use
  Company Number: None

PATIENT
  Sex: Female
  Weight: 72.5755 kg

DRUGS (1)
  1. ZICAM NASAL GEL NO LONGER HAVE PRODUCT IN MY HOME DO NOT KNOW AT THIS [Suspect]
     Indication: SINUSITIS
     Dosage: USED 2X DAILY AS NEEDED NASAL
     Route: 045
     Dates: start: 20080901, end: 20090301

REACTIONS (1)
  - PAROSMIA [None]
